FAERS Safety Report 5257122-5 (Version None)
Quarter: 2007Q1

REPORT INFORMATION
  Report Type: 
  Country: None (occurrence: None)
  Receive Date: 20070307
  Receipt Date: 20070226
  Transmission Date: 20070707
  Serious: Yes (Other)
  Sender: FDA-Public Use
  Company Number: JP-ROCHE-483201

PATIENT
  Age: 56 Year
  Sex: Male

DRUGS (4)
  1. ROCEPHIN [Suspect]
     Indication: PYREXIA
     Dosage: ROUTE REPORTED AS INTRAVENOUS (NOT OTHERWISE SPECIFIED).  DRUG REPORTED AS ROCEPHIN 1G BAG. SECOND +
     Route: 042
     Dates: start: 20070207, end: 20070213
  2. LOXONIN [Suspect]
     Indication: PYREXIA
     Dosage: SECOND INDICATION: PAIN.
     Route: 048
     Dates: start: 20070201, end: 20070213
  3. VOLTAREN [Suspect]
     Indication: PYREXIA
     Dosage: SECOND INDICATION: PAIN. FORM REPORTED AS RECTAL SUPPOSITORY.
     Route: 054
     Dates: start: 20070201, end: 20070213
  4. FUTHAN [Concomitant]
     Dosage: FORM REPORTED AS INJECTABLE (NOT OTHERWISE SPECIFIED).
     Route: 050
     Dates: start: 20070131, end: 20070210

REACTIONS (1)
  - ENTEROCOLITIS HAEMORRHAGIC [None]
